FAERS Safety Report 6415178-8 (Version None)
Quarter: 2009Q4

REPORT INFORMATION
  Report Type: 
  Country: None (occurrence: None)
  Receive Date: 20091027
  Receipt Date: 20091019
  Transmission Date: 20100525
  Serious: No
  Sender: FDA-Public Use
  Company Number: US-B.I. PHARMACEUTICALS,INC./RIDGEFIELD-2009-BP-10704BP

PATIENT
  Age: 62 Year
  Sex: Female

DRUGS (8)
  1. MIRAPEX [Suspect]
     Indication: RESTLESS LEGS SYNDROME
     Dosage: 0.25 MG
     Route: 048
     Dates: start: 20070101, end: 20090413
  2. MIRAPEX [Suspect]
     Dosage: 0.5 MG
     Route: 048
     Dates: start: 20090413
  3. ATENOLOL [Concomitant]
     Indication: HYPERTENSION
     Route: 048
  4. WELLBUTRIN XL [Concomitant]
     Indication: DEPRESSION
     Route: 048
  5. LEXAPRO [Concomitant]
     Indication: DEPRESSION
     Route: 048
  6. PROGESTERONE [Concomitant]
     Indication: MENOPAUSE
  7. RESTASIS [Concomitant]
     Indication: DRY EYE
  8. AMBIEN CR [Concomitant]

REACTIONS (1)
  - RESTLESS LEGS SYNDROME [None]
